FAERS Safety Report 4360492-3 (Version None)
Quarter: 2004Q2

REPORT INFORMATION
  Report Type: 
  Country: None (occurrence: None)
  Receive Date: 20040513
  Receipt Date: 20040505
  Transmission Date: 20050107
  Serious: Yes (Death)
  Sender: FDA-Public Use
  Company Number: 04H-163-0259848-00

PATIENT
  Sex: 0

DRUGS (1)
  1. POTASSIUM CHLORIDE [Suspect]

REACTIONS (1)
  - MEDICATION ERROR [None]
